FAERS Safety Report 4286454-2 (Version None)
Quarter: 2004Q1

REPORT INFORMATION
  Report Type: 
  Country: None (occurrence: None)
  Receive Date: 20040204
  Receipt Date: 20040121
  Transmission Date: 20041129
  Serious: Yes (Hospitalization)
  Sender: FDA-Public Use
  Company Number: 2004IC000004

PATIENT
  Age: 58 Year
  Sex: Male

DRUGS (10)
  1. FLUOROURACIL [Suspect]
     Indication: METASTASES TO LIVER
     Dosage: 1500 MG INTRAHEPATIC; 1000 MG INTRAHEPATIC; 500 MG INTRAHEPATIC
     Route: 025
     Dates: start: 20010405, end: 20030726
  2. FLUOROURACIL [Suspect]
     Indication: METASTASES TO LIVER
     Dosage: 1500 MG INTRAHEPATIC; 1000 MG INTRAHEPATIC; 500 MG INTRAHEPATIC
     Route: 025
     Dates: start: 20030726, end: 20030911
  3. FLUOROURACIL [Suspect]
     Indication: METASTASES TO LIVER
     Dosage: 1500 MG INTRAHEPATIC; 1000 MG INTRAHEPATIC; 500 MG INTRAHEPATIC
     Route: 025
     Dates: start: 20030911, end: 20031030
  4. CHINESE HERBAL MEDICINE [Concomitant]
  5. LAC B [Concomitant]
  6. SENNOSIDE [Concomitant]
  7. UFT [Concomitant]
  8. FURTULON [Concomitant]
  9. ISOVORIN ^WYETH LABORATORIES^ [Concomitant]
  10. SAXIZON [Concomitant]

REACTIONS (2)
  - JAUNDICE CHOLESTATIC [None]
  - NAUSEA [None]
